FAERS Safety Report 7442780-7 (Version None)
Quarter: 2011Q2

REPORT INFORMATION
  Report Type: 
  Country: None (occurrence: None)
  Receive Date: 20110428
  Receipt Date: 20110419
  Transmission Date: 20111010
  Serious: Yes (Hospitalization)
  Sender: FDA-Public Use
  Company Number: JP-JNJFOC-20110207250

PATIENT
  Sex: Female

DRUGS (11)
  1. BONALON [Concomitant]
     Indication: OSTEOPOROSIS
     Route: 048
  2. MERCAZOLE [Concomitant]
     Indication: HYPERTHYROIDISM
     Route: 048
  3. GOLIMUMAB [Suspect]
     Indication: RHEUMATOID ARTHRITIS
     Route: 058
  4. KETOPROFEN [Concomitant]
     Indication: RHEUMATOID ARTHRITIS
  5. VOLTAREN [Concomitant]
     Indication: RHEUMATOID ARTHRITIS
     Route: 048
  6. PARIET [Concomitant]
     Indication: GASTROINTESTINAL DISORDER THERAPY
     Route: 048
  7. FERRUM [Concomitant]
     Indication: IRON DEFICIENCY ANAEMIA
     Route: 048
  8. MEDROL [Concomitant]
     Indication: RHEUMATOID ARTHRITIS
     Route: 048
  9. VOLTAREN [Concomitant]
     Route: 048
  10. CYTOTEC [Concomitant]
     Indication: GASTROINTESTINAL DISORDER THERAPY
     Route: 048
  11. MUCOSTA [Concomitant]
     Indication: GASTROINTESTINAL DISORDER THERAPY
     Route: 048

REACTIONS (1)
  - ARTHRITIS [None]
